FAERS Safety Report 14711993 (Version 1)
Quarter: 2018Q2

REPORT INFORMATION
  Report Type: Report from Study
  Country: None (occurrence: ES)
  Receive Date: 20180404
  Receipt Date: 20180404
  Transmission Date: 20180711
  Serious: Yes (Hospitalization)
  Sender: FDA-Public Use
  Company Number: ES-ABBVIE-17K-144-2080767-00

PATIENT
  Age: 65 Year
  Sex: Female
  Weight: 78 kg

DRUGS (7)
  1. HUMIRA [Suspect]
     Active Substance: ADALIMUMAB
     Dosage: STOP DATE TEXT 25-OCT-2017
     Route: 058
     Dates: start: 2017
  2. OMEPRAZOLE. [Concomitant]
     Active Substance: OMEPRAZOLE
     Indication: GASTRITIS PROPHYLAXIS
  3. HUMIRA [Suspect]
     Active Substance: ADALIMUMAB
     Indication: SPONDYLITIS
     Route: 058
     Dates: start: 20170714, end: 2017
  4. LYRICA [Concomitant]
     Active Substance: PREGABALIN
     Indication: SPONDYLITIS
     Route: 048
     Dates: start: 2015
  5. ARCOXIA [Concomitant]
     Active Substance: ETORICOXIB
     Indication: SPONDYLITIS
     Route: 048
     Dates: start: 2015
  6. OMEPRAZOLE. [Concomitant]
     Active Substance: OMEPRAZOLE
     Indication: GASTRIC DISORDER
     Route: 048
     Dates: start: 2015
  7. CORTISONE [Concomitant]
     Active Substance: CORTISONE\HYDROCORTISONE
     Indication: SPONDYLITIS
     Route: 048
     Dates: start: 2015

REACTIONS (7)
  - Limb deformity [Not Recovered/Not Resolved]
  - Monoplegia [Not Recovered/Not Resolved]
  - Nerve compression [Not Recovered/Not Resolved]
  - Fatigue [Not Recovered/Not Resolved]
  - Arthralgia [Recovering/Resolving]
  - Hemiplegia [Not Recovered/Not Resolved]
  - Device issue [Unknown]

NARRATIVE: CASE EVENT DATE: 201707
